FAERS Safety Report 5581223-5 (Version None)
Quarter: 2007Q4

REPORT INFORMATION
  Report Type: 
  Country: None (occurrence: None)
  Receive Date: 20071226
  Receipt Date: 20071207
  Transmission Date: 20080405
  Serious: Yes (Hospitalization)
  Sender: FDA-Public Use
  Company Number: 8028624

PATIENT
  Age: 13 Year
  Sex: Female
  Weight: 64 kg

DRUGS (2)
  1. KEPPRA [Suspect]
     Indication: EPILEPSY
     Dosage: 1000 MG 2/D PO
     Route: 048
     Dates: start: 20071015
  2. TOPAMAX [Suspect]
     Indication: EPILEPSY
     Dosage: 75 MG 2/D PO
     Route: 048
     Dates: start: 20071001

REACTIONS (2)
  - OVARIAN CYST [None]
  - VOMITING [None]
